FAERS Safety Report 6867738-8 (Version None)
Quarter: 2010Q3

REPORT INFORMATION
  Report Type: 
  Country: None (occurrence: None)
  Receive Date: 20100722
  Receipt Date: 20100712
  Transmission Date: 20110219
  Serious: Yes (Other)
  Sender: FDA-Public Use
  Company Number: US-PURDUE-USA-2010-0045050

PATIENT
  Age: 51 Year
  Sex: Female
  Weight: 81 kg

DRUGS (12)
  1. DILAUDID [Suspect]
     Indication: PAIN
     Dosage: SEE TEXT, PCA
     Dates: start: 20090102
  2. DILAUDID [Suspect]
     Indication: PAIN
     Dosage: SEE TEXT
     Route: 048
     Dates: start: 20080811
  3. OXYCONTIN [Suspect]
     Indication: PAIN
     Dosage: 80 MG, TID
     Route: 048
     Dates: start: 20080811
  4. SILDENAFIL CITRATE [Suspect]
     Indication: PULMONARY HYPERTENSION
     Dosage: 20 MG, TID
     Route: 048
     Dates: start: 20081230, end: 20090116
  5. HYDROXYUREA [Concomitant]
  6. FOLIC ACID [Concomitant]
  7. AMBIEN [Concomitant]
  8. CLONAZEPAM [Concomitant]
  9. PRINIVIL                           /00894001/ [Concomitant]
  10. ROPINIROLE [Concomitant]
  11. SERTRALINE HCL [Concomitant]
  12. SYNTHROID [Concomitant]

REACTIONS (9)
  - BRONCHIAL HYPERREACTIVITY [None]
  - CHILLS [None]
  - COUGH [None]
  - HYPERCAPNIA [None]
  - NECK PAIN [None]
  - OROPHARYNGEAL PAIN [None]
  - RESPIRATORY ACIDOSIS [None]
  - SICKLE CELL ANAEMIA WITH CRISIS [None]
  - SOMNOLENCE [None]
